FAERS Safety Report 7478846-5 (Version None)
Quarter: 2011Q2

REPORT INFORMATION
  Report Type: 
  Country: None (occurrence: None)
  Receive Date: 20110513
  Receipt Date: 20110509
  Transmission Date: 20111010
  Serious: Yes (Other)
  Sender: FDA-Public Use
  Company Number: US-BAYER-2011-040589

PATIENT
  Sex: Female

DRUGS (2)
  1. YAZ [Suspect]
     Dosage: UNK
     Dates: start: 19940101, end: 20101101
  2. YASMIN [Suspect]
     Dosage: UNK
     Dates: start: 19940101, end: 20101101

REACTIONS (7)
  - PAIN [None]
  - CHOLECYSTECTOMY [None]
  - FEAR [None]
  - ANXIETY [None]
  - PSYCHIATRIC SYMPTOM [None]
  - INJURY [None]
  - EMOTIONAL DISTRESS [None]
